FAERS Safety Report 7288546-2 (Version None)
Quarter: 2011Q1

REPORT INFORMATION
  Report Type: 
  Country: None (occurrence: None)
  Receive Date: 20110211
  Receipt Date: 20110207
  Transmission Date: 20110831
  Serious: Yes (Hospitalization)
  Sender: FDA-Public Use
  Company Number: ES-PFIZER INC-2006127910

PATIENT
  Age: 47 Year
  Sex: Male
  Weight: 68 kg

DRUGS (7)
  1. ALDACTONE [Concomitant]
     Route: 048
     Dates: start: 20061002
  2. EUTIROX [Concomitant]
     Route: 048
     Dates: start: 20060531
  3. HYDROCORTISONE [Concomitant]
     Route: 048
     Dates: start: 20061002
  4. LORAZEPAM [Concomitant]
     Route: 048
     Dates: start: 20061002
  5. SUNITINIB MALATE [Suspect]
     Indication: METASTATIC RENAL CELL CARCINOMA
     Dosage: 50 MG, 1X/DAY CYCLIC OD: 4 WEEKS ON/ 2 WEEKS OFF
     Route: 048
     Dates: start: 20060303, end: 20060904
  6. LEVOTHROID [Concomitant]
     Dosage: UNK
     Route: 048
     Dates: start: 20060412
  7. SUNITINIB MALATE [Suspect]
     Dosage: 37.5 MG, 1X/DAY
     Route: 048
     Dates: start: 20060915

REACTIONS (2)
  - MUSCULAR WEAKNESS [None]
  - RENAL FAILURE [None]
